FAERS Safety Report 9334966 (Version 1)
Quarter: 2013Q2

REPORT INFORMATION
  Report Type: Spontaneous
  Country: ES (occurrence: ES)
  Receive Date: 20130606
  Receipt Date: 20130606
  Transmission Date: 20140414
  Serious: Yes (Hospitalization)
  Sender: FDA-Public Use
  Company Number: PHHY2013ES054522

PATIENT
  Age: 81 Year
  Sex: Female

DRUGS (6)
  1. TRAMADOL [Suspect]
     Indication: OSTEOARTHRITIS
     Dosage: 100 MG, QD
  2. SERTRALINE [Concomitant]
     Indication: DEPRESSION
     Dosage: 50 MG, QD
  3. CODEINE [Concomitant]
     Dosage: 1 ML, EVERY 8 HOURS
     Route: 048
  4. IRON [Concomitant]
     Dosage: 40 MG, QD
  5. CHOLECALCIFEROL [Concomitant]
     Dosage: (1500 MG/ 400 UI PER DAY)
  6. OMEPRAZOLE [Concomitant]
     Dosage: 20 MG, QD

REACTIONS (5)
  - Psychotic disorder [Recovered/Resolved]
  - Persecutory delusion [Recovered/Resolved]
  - Delusion [Recovered/Resolved]
  - Hallucinations, mixed [Recovered/Resolved]
  - Insomnia [Recovered/Resolved]
